FAERS Safety Report 11755025 (Version 2)
Quarter: 2016Q1

REPORT INFORMATION
  Report Type: Spontaneous
  Country: US (occurrence: US)
  Receive Date: 20151119
  Receipt Date: 20160209
  Transmission Date: 20160525
  Serious: No
  Sender: FDA-Public Use
  Company Number: ALCN2015US007170

PATIENT
  Sex: Female

DRUGS (1)
  1. SYSTANE (POLYETHYLENE GLYCOL 400\PROPYLENE GLYCOL) [Suspect]
     Active Substance: POLYETHYLENE GLYCOL 400\PROPYLENE GLYCOL
     Indication: DRY EYE
     Route: 047

REACTIONS (3)
  - Ocular discomfort [Recovering/Resolving]
  - Condition aggravated [Recovering/Resolving]
  - Dry eye [Recovering/Resolving]
